FAERS Safety Report 7342761-8 (Version None)
Quarter: 2011Q1

REPORT INFORMATION
  Report Type: 
  Country: None (occurrence: None)
  Receive Date: 20110301
  Receipt Date: 20110216
  Transmission Date: 20110831
  Serious: Yes (Other)
  Sender: FDA-Public Use
  Company Number: 2011MA001501

PATIENT
  Age: 30 Year
  Sex: Female

DRUGS (3)
  1. CITALOPRAM HYDROBROMIDE [Suspect]
     Indication: ANXIETY
     Dosage: 20 MG;QD;PO
     Route: 048
     Dates: start: 20101029
  2. CITALOPRAM HYDROBROMIDE [Suspect]
     Indication: DEPRESSION
     Dosage: 20 MG;QD;PO
     Route: 048
     Dates: start: 20101029
  3. MICROGYN [Concomitant]

REACTIONS (10)
  - DRY MOUTH [None]
  - ARRHYTHMIA [None]
  - POLLAKIURIA [None]
  - TREMOR [None]
  - NAUSEA [None]
  - DEREALISATION [None]
  - DIARRHOEA [None]
  - HYPERACUSIS [None]
  - ANXIETY [None]
  - CONDITION AGGRAVATED [None]
